FAERS Safety Report 8274277-9 (Version None)
Quarter: 2012Q2

REPORT INFORMATION
  Report Type: 
  Country: None (occurrence: None)
  Receive Date: 20120411
  Receipt Date: 20120411
  Transmission Date: 20120825
  Serious: Yes (Other)
  Sender: FDA-Public Use
  Company Number: None

PATIENT
  Age: 13 Year
  Sex: Female
  Weight: 57.606 kg

DRUGS (2)
  1. LAMOTRGINE [Concomitant]
  2. LAMOTRGINE [Suspect]
     Indication: AFFECTIVE DISORDER
     Dosage: 12.5 MG
     Route: 048
     Dates: start: 20120404, end: 20120405

REACTIONS (4)
  - HALLUCINATION [None]
  - PSYCHOTIC DISORDER [None]
  - DELUSION [None]
  - RASH [None]
